FAERS Safety Report 9054652 (Version 1)
Quarter: 2013Q1

REPORT INFORMATION
  Report Type: Report from Study
  Country: DE (occurrence: DE)
  Receive Date: 20130208
  Receipt Date: 20130208
  Transmission Date: 20140127
  Serious: Yes (Hospitalization)
  Sender: FDA-Public Use
  Company Number: DE-BRISTOL-MYERS SQUIBB COMPANY-17354507

PATIENT
  Sex: 0

DRUGS (3)
  1. CETUXIMAB [Suspect]
     Indication: OESOPHAGEAL CARCINOMA
  2. CISPLATIN [Suspect]
     Indication: OESOPHAGEAL CARCINOMA
  3. DOCETAXEL [Suspect]
     Indication: OESOPHAGEAL CARCINOMA

REACTIONS (2)
  - Staphylococcal mediastinitis [Unknown]
  - Back pain [Unknown]
